FAERS Safety Report 7532746-0 (Version None)
Quarter: 2011Q2

REPORT INFORMATION
  Report Type: 
  Country: None (occurrence: None)
  Receive Date: 20110608
  Receipt Date: 20110523
  Transmission Date: 20111010
  Serious: Yes (Other)
  Sender: FDA-Public Use
  Company Number: A0930512A

PATIENT
  Sex: Male

DRUGS (1)
  1. AVANDIA [Suspect]

REACTIONS (3)
  - CARDIAC HYPERTROPHY [None]
  - CHRONIC OBSTRUCTIVE PULMONARY DISEASE [None]
  - CARDIAC FAILURE CONGESTIVE [None]
